FAERS Safety Report 15573793 (Version 1)
Quarter: 2018Q4

REPORT INFORMATION
  Report Type: Spontaneous
  Country: FR (occurrence: FR)
  Receive Date: 20181101
  Receipt Date: 20181101
  Transmission Date: 20190205
  Serious: Yes (Hospitalization)
  Sender: FDA-Public Use
  Company Number: FR-TEVA-2018-FR-970889

PATIENT
  Age: 51 Year
  Sex: Male
  Weight: 60 kg

DRUGS (9)
  1. VANCOMYCINE [Suspect]
     Active Substance: VANCOMYCIN
     Route: 065
     Dates: start: 20160405, end: 20160412
  2. ORBENINE [Suspect]
     Active Substance: CLOXACILLIN SODIUM
     Route: 065
     Dates: start: 20160412, end: 20160420
  3. WELLVONE [Suspect]
     Active Substance: ATOVAQUONE
     Indication: HIV INFECTION
     Dosage: DOSAGE FORM: UNSPECIFIED
     Route: 048
     Dates: start: 20151120, end: 20160108
  4. OXACILLINE [Concomitant]
     Active Substance: OXACILLIN SODIUM
     Dosage: DOSAGE FORM: UNSPECIFIED
     Route: 065
     Dates: start: 20151126, end: 20151224
  5. ISENTRESS [Suspect]
     Active Substance: RALTEGRAVIR POTASSIUM
     Indication: HIV INFECTION
     Dosage: DOSAGE FORM: UNSPECIFIED
     Route: 048
     Dates: start: 20151206, end: 20160106
  6. INTELENCE [Suspect]
     Active Substance: ETRAVIRINE
     Indication: HIV INFECTION
     Route: 048
     Dates: start: 20151206, end: 20160106
  7. NORVIR [Suspect]
     Active Substance: RITONAVIR
     Indication: HIV INFECTION
     Dosage: DOSAGE FORM: UNSPECIFIED
     Route: 048
     Dates: start: 20151206, end: 20160106
  8. PREZISTA [Suspect]
     Active Substance: DARUNAVIR ETHANOLATE
     Indication: HIV INFECTION
     Route: 048
     Dates: start: 20151206, end: 20160106
  9. SIGMACILLINA [Concomitant]
     Active Substance: PENICILLIN G BENZATHINE
     Route: 065
     Dates: start: 20151126, end: 20151210

REACTIONS (1)
  - Drug reaction with eosinophilia and systemic symptoms [Recovered/Resolved]

NARRATIVE: CASE EVENT DATE: 20160104
